FAERS Safety Report 4502922-X (Version None)
Quarter: 2004Q4

REPORT INFORMATION
  Report Type: 
  Country: None (occurrence: None)
  Receive Date: 20041116
  Receipt Date: 20041116
  Transmission Date: 20050328
  Serious: No
  Sender: FDA-Public Use
  Company Number: None

PATIENT
  Age: 53 Year
  Sex: Female
  Weight: 85.7298 kg

DRUGS (4)
  1. EFFEXOR XR [Suspect]
     Indication: ANXIETY
     Dosage: 1 CAPSULE  A DAY ORAL
     Route: 048
     Dates: start: 20040510, end: 20041003
  2. EFFEXOR XR [Suspect]
     Indication: DEPRESSION
     Dosage: 1 CAPSULE  A DAY ORAL
     Route: 048
     Dates: start: 20040510, end: 20041003
  3. EFFEXOR XR [Suspect]
     Indication: ANXIETY
     Dosage: SAME A DAY ORAL
     Route: 048
     Dates: start: 20041003, end: 20041111
  4. EFFEXOR XR [Suspect]
     Indication: DEPRESSION
     Dosage: SAME A DAY ORAL
     Route: 048
     Dates: start: 20041003, end: 20041111

REACTIONS (5)
  - DISTURBANCE IN ATTENTION [None]
  - DRUG WITHDRAWAL SYNDROME [None]
  - IRRITABILITY [None]
  - THINKING ABNORMAL [None]
  - TINNITUS [None]
